FAERS Safety Report 12746184 (Version 1)
Quarter: 2016Q3

REPORT INFORMATION
  Report Type: Spontaneous
  Country: US (occurrence: US)
  Receive Date: 20160915
  Receipt Date: 20160915
  Transmission Date: 20161109
  Serious: Yes (Hospitalization, Other)
  Sender: FDA-Public Use
  Company Number: US-GLAXOSMITHKLINE-US2016134093

PATIENT
  Sex: Female

DRUGS (1)
  1. BREO ELLIPTA [Suspect]
     Active Substance: FLUTICASONE FUROATE\VILANTEROL TRIFENATATE

REACTIONS (6)
  - Spinal fracture [Unknown]
  - Hospitalisation [Unknown]
  - Asthma [Unknown]
  - Surgery [Unknown]
  - Spinal operation [Unknown]
  - Oxygen saturation decreased [Unknown]
